FAERS Safety Report 26077838 (Version 1)
Quarter: 2025Q4

REPORT INFORMATION
  Report Type: Spontaneous
  Country: US (occurrence: US)
  Receive Date: 20251122
  Receipt Date: 20251122
  Transmission Date: 20260117
  Serious: No
  Sender: MDD OPERATIONS
  Company Number: US-MDD US Operations-MDD202509-003962

PATIENT
  Sex: Female

DRUGS (1)
  1. ONAPGO [Suspect]
     Active Substance: APOMORPHINE HYDROCHLORIDE
     Indication: Parkinson^s disease
     Dosage: CONTINUOUS FOR 13-16 HOURS WHILE AWAKE
     Dates: start: 20250909

REACTIONS (2)
  - Infusion site coldness [Recovered/Resolved]
  - Infusion site erythema [Recovered/Resolved]
